FAERS Safety Report 17826290 (Version 4)
Quarter: 2020Q4

REPORT INFORMATION
  Report Type: Report from Study
  Country: US (occurrence: US)
  Receive Date: 20200526
  Receipt Date: 20201119
  Transmission Date: 20210113
  Serious: Yes (Death, Other)
  Sender: FDA-Public Use
  Company Number: US-SA-2020SA091152

PATIENT

DRUGS (2)
  1. HYDROXYCHLOROQUINE SULFATE. [Concomitant]
     Active Substance: HYDROXYCHLOROQUINE SULFATE
     Indication: COVID-19 PNEUMONIA
     Dosage: 200 MG, Q12H
     Route: 050
     Dates: start: 20200328, end: 20200404
  2. SARILUMAB [Suspect]
     Active Substance: SARILUMAB
     Indication: COVID-19
     Dosage: 200 MG, 1X
     Route: 042
     Dates: start: 20200403, end: 20200403

REACTIONS (2)
  - Transaminases increased [Not Recovered/Not Resolved]
  - Metabolic acidosis [Fatal]

NARRATIVE: CASE EVENT DATE: 20200404
